FAERS Safety Report 8588123 (Version 2)
Quarter: 2012Q4

REPORT INFORMATION
  Report Type: 
  Country: US (occurrence: US)
  Receive Date: 20120531
  Receipt Date: 20121025
  Transmission Date: 20130627
  Serious: Yes (Hospitalization, Other)
  Sender: FDA-Public Use
  Company Number: US-BAYER-2012-052689

PATIENT
  Age: 34 Year
  Sex: Female
  Weight: 108.84 kg

DRUGS (14)
  1. YASMIN [Suspect]
     Indication: CONTRACEPTION
     Dosage: UNK
     Dates: start: 20061023, end: 20070311
  2. YASMIN [Suspect]
     Indication: CONTRACEPTION
     Dosage: UNK
     Dates: start: 201008, end: 20101123
  3. OCELLA [Suspect]
     Indication: CONTRACEPTION
     Dosage: UNK
     Dates: start: 201003, end: 201008
  4. YAZ [Suspect]
     Dosage: UNK
     Dates: start: 200911
  5. INDAPAMIDE [Concomitant]
     Indication: DIURETIC THERAPY
     Dosage: 1.25 mg tablets 1 before breakfast
     Route: 048
     Dates: start: 20020425
  6. AZITHROMYCIN [Concomitant]
     Dosage: 250 mg tablets 6 pak, 2 at once today then 1 daily for [time nos]
     Route: 048
  7. PREDNISONE [Concomitant]
     Dosage: 20 mg tablets, 4 daily for 2 days, 3 daily for 2 days, 2 daily for 2 days, then 1 daily for 2 days
     Route: 048
     Dates: start: 20101201
  8. ZOLPIDEM [Concomitant]
     Indication: INSOMNIA
     Dosage: 10 mg tablets ? to one at bedtome as needed
     Route: 048
  9. IBUPROFEN [Concomitant]
     Indication: PAIN
     Dosage: 800 mg tablets 1 3 times a day as needed
     Route: 048
  10. TRAZODONE [Concomitant]
     Dosage: 50 mg, ? to one HS
     Route: 048
  11. CLOTRIMAZOLE W/BETAMETHASONE DIPROPIONAT [Concomitant]
     Dosage: 45 g, BID
     Route: 061
  12. CEPHALEXIN [Concomitant]
     Dosage: 500 mg capsules, take 1 3 times a day for 10days
     Route: 048
  13. RANITIDINE [Concomitant]
     Dosage: 300 mg, HS
  14. PROTONIX [Concomitant]
     Dosage: 40 mg, 1 daily
     Route: 048

REACTIONS (6)
  - Deep vein thrombosis [Recovered/Resolved]
  - Pulmonary embolism [None]
  - Pain [None]
  - Pain in extremity [Recovered/Resolved]
  - Musculoskeletal stiffness [Recovered/Resolved]
  - Dyspnoea [None]
